FAERS Safety Report 14587755 (Version 1)
Quarter: 2018Q1

REPORT INFORMATION
  Report Type: Spontaneous
  Country: DE (occurrence: DE)
  Receive Date: 20180301
  Receipt Date: 20180301
  Transmission Date: 20180509
  Serious: Yes (Other)
  Sender: FDA-Public Use
  Company Number: PHHY2017DE165485

PATIENT

DRUGS (2)
  1. DABRAFENIB [Suspect]
     Active Substance: DABRAFENIB
     Indication: PAPILLARY THYROID CANCER
  2. DABRAFENIB [Suspect]
     Active Substance: DABRAFENIB
     Indication: PAPILLARY THYROID CANCER
     Dosage: 300 MG, QD
     Route: 065

REACTIONS (3)
  - Papillary thyroid cancer [Unknown]
  - Malignant neoplasm progression [Unknown]
  - Product use in unapproved indication [Unknown]
